FAERS Safety Report 5113861-8 (Version None)
Quarter: 2006Q3

REPORT INFORMATION
  Report Type: 
  Country: None (occurrence: None)
  Receive Date: 20060921
  Receipt Date: 20060921
  Transmission Date: 20061208
  Serious: Yes (Other)
  Sender: FDA-Public Use
  Company Number: None

PATIENT
  Age: 66 Year
  Sex: Female
  Weight: 65.7716 kg

DRUGS (1)
  1. LYRICA [Suspect]
     Indication: RADICULOPATHY
     Dosage: 50 MG TWICE A DAY ORAL
     Route: 048
     Dates: start: 20060601, end: 20060820

REACTIONS (3)
  - BLOOD PRESSURE INCREASED [None]
  - DYSPNOEA [None]
  - OEDEMA [None]
